FAERS Safety Report 7605081-X (Version None)
Quarter: 2011Q3

REPORT INFORMATION
  Report Type: 
  Country: None (occurrence: None)
  Receive Date: 20110713
  Receipt Date: 20090924
  Transmission Date: 20111222
  Serious: Yes (Hospitalization, Other)
  Sender: FDA-Public Use
  Company Number: US-BAYER-201040163NA

PATIENT
  Age: 71 Year
  Sex: Male
  Weight: 95 kg

DRUGS (25)
  1. PROPOFOL [Concomitant]
     Dosage: 50 ?G, UNK
     Route: 042
     Dates: start: 20030401, end: 20030402
  2. KEFZOL [Concomitant]
     Dosage: 1 G, TID
     Dates: start: 20030401, end: 20030401
  3. TRASYLOL [Suspect]
     Dosage: 25ML/HOUR, INFUSION
     Route: 042
     Dates: start: 20030401, end: 20030401
  4. ATENOLOL [Concomitant]
     Dosage: 25 MG, QD, LONG TERM
     Route: 048
  5. ZOCOR [Concomitant]
     Dosage: 40-80MG, LONG TERM
     Route: 048
  6. PRILOSEC [Concomitant]
     Dosage: 20 MG, QD
     Route: 048
  7. DOPAMINE HCL [Concomitant]
     Dosage: 7 MICROGRAMS/KILOGRAM/MINUTE
     Route: 042
     Dates: start: 20030401, end: 20030407
  8. HEPARIN [Concomitant]
     Dosage: 15000-32000 UNITS X2
     Route: 042
     Dates: start: 20030401, end: 20030401
  9. PAVULON [Concomitant]
     Dosage: 8 MG, UNK
     Dates: start: 20030401, end: 20030401
  10. ACETYLSALICYLIC ACID SRT [Concomitant]
     Dosage: , LONG TERM325 MG, QD
     Route: 048
  11. NORVASC [Concomitant]
     Dosage: 2.5 MG, QD, LONG TERM
     Route: 048
  12. PROPOFOL [Concomitant]
     Dosage: 25 ?G/H, UNK
     Route: 042
     Dates: start: 20030401, end: 20030402
  13. FENTANYL-100 [Concomitant]
     Dosage: 3-5ML, BOLUSES
     Route: 042
     Dates: start: 20030401, end: 20030401
  14. LOPRESSOR [Concomitant]
     Dosage: 25 MG, UNK
     Route: 042
  15. LIDOCAINE [Concomitant]
     Dosage: 100 MG, BID
     Route: 042
     Dates: start: 20030401, end: 20030401
  16. PROTAMINE SULFATE [Concomitant]
     Dosage: UNK
     Route: 042
     Dates: start: 20030401, end: 20030401
  17. PLAVIX [Concomitant]
     Dosage: 75 MG, QD, LONG TERM
     Route: 048
  18. MANNITOL [Concomitant]
     Dosage: 2.5 G, UNK
     Route: 042
     Dates: start: 20030401
  19. VERSED [Concomitant]
     Dosage: 2-3ML BOLUSES
     Route: 042
     Dates: start: 20030401, end: 20030401
  20. NITROGLYCERIN [Concomitant]
     Dosage: 40-75MICROGRAMS/MINUTE
     Route: 042
     Dates: start: 20030401, end: 20030402
  21. LEVOPHED [Concomitant]
     Dosage: 1-3 MICROGRAMS/MINUTES
     Route: 042
     Dates: start: 20030401, end: 20030401
  22. AMIODARONE HCL [Concomitant]
     Dosage: 33ML/HOUR
     Route: 042
     Dates: start: 20030401, end: 20030403
  23. TRASYLOL [Suspect]
     Indication: PRODUCT USED FOR UNKNOWN INDICATION
     Dosage: 10 X 6 KALLIKREIN INHIBITOR UNITS/ML
     Route: 042
     Dates: start: 20030401, end: 20030401
  24. NORCURONIUM [Concomitant]
     Dosage: 5 MG, SECOND SURGERY
     Route: 042
     Dates: start: 20030401, end: 20030401
  25. GENTAMYCIN SULFATE [Concomitant]
     Dosage: 40 MG, UNK
     Route: 042
     Dates: start: 20030401, end: 20030401

REACTIONS (11)
  - RENAL FAILURE [None]
  - EMOTIONAL DISTRESS [None]
  - ANXIETY [None]
  - MULTI-ORGAN FAILURE [None]
  - RENAL IMPAIRMENT [None]
  - STRESS [None]
  - PAIN [None]
  - RENAL INJURY [None]
  - INJURY [None]
  - UNEVALUABLE EVENT [None]
  - FEAR [None]
